FAERS Safety Report 5329057-0 (Version None)
Quarter: 2007Q2

REPORT INFORMATION
  Report Type: 
  Country: None (occurrence: None)
  Receive Date: 20070518
  Receipt Date: 20070507
  Transmission Date: 20071010
  Serious: Yes (Disabling, Other)
  Sender: FDA-Public Use
  Company Number: US-PFIZER INC-2006093741

PATIENT
  Sex: Male
  Weight: 88.5 kg

DRUGS (2)
  1. SILDENAFIL CITRATE [Suspect]
     Indication: RADICAL PROSTATECTOMY
     Route: 048
  2. SILDENAFIL CITRATE [Suspect]
     Indication: ERECTILE DYSFUNCTION

REACTIONS (4)
  - BLINDNESS [None]
  - DEPOSIT EYE [None]
  - VISUAL DISTURBANCE [None]
  - VISUAL FIELD DEFECT [None]
